FAERS Safety Report 6075410-X (Version None)
Quarter: 2009Q1

REPORT INFORMATION
  Report Type: 
  Country: None (occurrence: None)
  Receive Date: 20090209
  Receipt Date: 20090128
  Transmission Date: 20090719
  Serious: No
  Sender: FDA-Public Use
  Company Number: CIO09002150

PATIENT
  Age: 8 Year
  Sex: Male

DRUGS (1)
  1. CREST CAVITY PROTECTION KID'S TOOTHPASTE, SPARKLE FUN FLAVOR(SODIUM FL [Suspect]
     Dosage: 1 APPLIC, 2 /DAY FOR 7 DAYS, INTRAORAL
     Route: 048
     Dates: start: 20090120, end: 20090127

REACTIONS (5)
  - ANAPHYLACTIC REACTION [None]
  - DYSPNOEA [None]
  - LIP SWELLING [None]
  - ORAL PRURITUS [None]
  - THROAT IRRITATION [None]
